FAERS Safety Report 6157214-2 (Version None)
Quarter: 2009Q2

REPORT INFORMATION
  Report Type: 
  Country: None (occurrence: None)
  Receive Date: 20090416
  Receipt Date: 20090323
  Transmission Date: 20091009
  Serious: Yes (Death, Hospitalization, Other)
  Sender: FDA-Public Use
  Company Number: IT-MERCK-0508ITA00007

PATIENT
  Sex: Male

DRUGS (2)
  1. ZOCOR [Suspect]
     Route: 048
     Dates: start: 19981101, end: 20010701
  2. CYCLOSPORINE [Concomitant]
     Route: 048
     Dates: start: 19981101

REACTIONS (7)
  - CARDIAC FAILURE [None]
  - DEATH [None]
  - DYSPEPSIA [None]
  - OSTEOPOROSIS [None]
  - RENAL FAILURE ACUTE [None]
  - RHABDOMYOLYSIS [None]
  - THORACIC VERTEBRAL FRACTURE [None]
